FAERS Safety Report 18172640 (Version 6)
Quarter: 2021Q2

REPORT INFORMATION
  Report Type: Other
  Country: CA (occurrence: CA)
  Receive Date: 20200819
  Receipt Date: 20210422
  Transmission Date: 20210717
  Serious: Yes (Hospitalization, Other)
  Sender: FDA-Public Use
  Company Number: CA-ROCHE-2662226

PATIENT
  Age: 42 Year
  Sex: Male

DRUGS (3)
  1. GABAPENTIN. [Concomitant]
     Active Substance: GABAPENTIN
  2. MACROBID [Concomitant]
     Active Substance: NITROFURANTOIN\NITROFURANTOIN MONOHYDRATE
  3. OCREVUS [Suspect]
     Active Substance: OCRELIZUMAB
     Indication: RELAPSING-REMITTING MULTIPLE SCLEROSIS
     Dosage: THEN 600 MG EVERY 6 MONTH.
     Route: 042
     Dates: start: 20190318

REACTIONS (3)
  - Prostatitis [Not Recovered/Not Resolved]
  - Infection [Unknown]
  - Urinary tract infection pseudomonal [Recovering/Resolving]

NARRATIVE: CASE EVENT DATE: 20200810
